FAERS Safety Report 6857177-8 (Version None)
Quarter: 2010Q3

REPORT INFORMATION
  Report Type: 
  Country: None (occurrence: None)
  Receive Date: 20100719
  Receipt Date: 20100225
  Transmission Date: 20110219
  Serious: No
  Sender: FDA-Public Use
  Company Number: US-KINGPHARMUSA00001-K201000225

PATIENT
  Sex: Female
  Weight: 49.433 kg

DRUGS (2)
  1. LEVOXYL [Suspect]
     Dosage: 25 MCG, UNK
  2. XALATAN [Concomitant]
     Indication: INTRAOCULAR PRESSURE INCREASED
     Dosage: 1 GTT BOTH EYES, QHS
     Route: 031

REACTIONS (3)
  - DECREASED APPETITE [None]
  - OSTEOPOROSIS [None]
  - WEIGHT DECREASED [None]
